FAERS Safety Report 16124376 (Version 1)
Quarter: 2019Q1

REPORT INFORMATION
  Report Type: Spontaneous
  Country: US (occurrence: US)
  Receive Date: 20190327
  Receipt Date: 20190327
  Transmission Date: 20190418
  Serious: Yes (Other)
  Sender: FDA-Public Use
  Company Number: US-SA-2019SA078297

PATIENT
  Sex: Male

DRUGS (1)
  1. GOLD BOND ULTIMATE 5-IN-1 FACE [Suspect]
     Active Substance: AVOBENZONE\OCTISALATE\OCTOCRYLENE

REACTIONS (1)
  - Cellulitis [Unknown]
